FAERS Safety Report 7455426-9 (Version None)
Quarter: 2011Q2

REPORT INFORMATION
  Report Type: 
  Country: None (occurrence: None)
  Receive Date: 20110503
  Receipt Date: 20100426
  Transmission Date: 20111010
  Serious: No
  Sender: FDA-Public Use
  Company Number: US-SANOFI-AVENTIS-2010SA025207

PATIENT
  Age: 66 Year
  Sex: Female

DRUGS (1)
  1. APIDRA [Suspect]
     Dosage: 3-4 UNITS
     Route: 058

REACTIONS (3)
  - MUSCLE SPASMS [None]
  - LIPODYSTROPHY ACQUIRED [None]
  - EUPHORIC MOOD [None]
